FAERS Safety Report 5402177-8 (Version None)
Quarter: 2007Q3

REPORT INFORMATION
  Report Type: 
  Country: None (occurrence: None)
  Receive Date: 20070801
  Receipt Date: 20070726
  Transmission Date: 20080115
  Serious: Yes (Death, Hospitalization)
  Sender: FDA-Public Use
  Company Number: CH-NOVOPROD-265976

PATIENT
  Age: 80 Year
  Sex: Female
  Weight: 83 kg

DRUGS (10)
  1. NOVONORM [Suspect]
     Indication: TYPE 2 DIABETES MELLITUS
     Dosage: 6 MG, QD
     Route: 048
     Dates: start: 20070622, end: 20070624
  2. METFIN [Concomitant]
     Indication: TYPE 2 DIABETES MELLITUS
     Dosage: 1000 MG, BID
     Route: 048
     Dates: start: 20070622, end: 20070624
  3. FLUCONAZOLE [Concomitant]
     Indication: MYCOSIS FUNGOIDES
     Dosage: 150 MG, PER WEEK
     Route: 048
  4. SINEMET CR [Concomitant]
     Dosage: 250 MG, QD
     Route: 048
  5. EXELON                             /01383202/ [Concomitant]
     Dosage: 6 MG, QD
     Route: 048
  6. SEROQUEL                           /01270902/ [Concomitant]
     Dosage: 175 MG, QD
     Route: 048
  7. FOSAMAX ONCE WEEKLY [Concomitant]
     Dosage: 70 MG, PER WEEK
     Route: 048
  8. OMED [Concomitant]
     Dosage: 40 MG, QD
     Route: 048
  9. SPIRICORT [Concomitant]
     Dosage: 5 MG, QD
     Route: 048
  10. CALCIMAGON-D3 [Concomitant]
     Dosage: 1 MG, QD
     Route: 048

REACTIONS (2)
  - DEATH [None]
  - HYPOGLYCAEMIC COMA [None]
